FAERS Safety Report 8188342-8 (Version None)
Quarter: 2012Q1

REPORT INFORMATION
  Report Type: 
  Country: None (occurrence: None)
  Receive Date: 20120306
  Receipt Date: 20110711
  Transmission Date: 20120608
  Serious: Yes (Other)
  Sender: FDA-Public Use
  Company Number: DE-TEVA-290520GER

PATIENT
  Age: 10 Year
  Sex: Female

DRUGS (8)
  1. ETANERCEPT [Concomitant]
     Indication: POLYCHONDRITIS
  2. ANAKRINA [Concomitant]
     Indication: POLYCHONDRITIS
  3. METHOTREXATE [Concomitant]
     Indication: POLYCHONDRITIS
  4. PREDNISONE TAB [Suspect]
     Dosage: 10 MILLIGRAM;
  5. INFLIXIMAB [Concomitant]
     Indication: POLYCHONDRITIS
  6. PREDNISONE TAB [Suspect]
     Indication: POLYCHONDRITIS
     Dosage: 1 MG/KG;
  7. METHYLPREDNISOLONE [Suspect]
     Indication: POLYCHONDRITIS
     Dosage: 1 GRAM;
     Route: 042
  8. IMMUNE GLOBULIN (HUMAN) [Concomitant]
     Indication: POLYCHONDRITIS

REACTIONS (2)
  - EPIDURAL LIPOMATOSIS [None]
  - CUSHING'S SYNDROME [None]
